FAERS Safety Report 8932887 (Version 4)
Quarter: 2013Q2

REPORT INFORMATION
  Report Type: Spontaneous
  Country: US (occurrence: US)
  Receive Date: 20121129
  Receipt Date: 20130524
  Transmission Date: 20140414
  Serious: Yes (Other)
  Sender: FDA-Public Use
  Company Number: US-009507513-1211USA011405

PATIENT
  Sex: Female

DRUGS (4)
  1. COSOPT [Suspect]
     Indication: GLAUCOMA
     Dosage: 2 GTT, FOR THREE DAYS WITH ONE DAY REST
     Route: 047
     Dates: start: 2010
  2. DORZOLAMIDE HYDROCHLORIDE (+) TIMOLOL MALEATE [Suspect]
     Indication: GLAUCOMA
     Dosage: UNK UNK, BID, EVERY FOUR DAYS
     Route: 047
     Dates: start: 20120626, end: 20120926
  3. DORZOLAMIDE HYDROCHLORIDE (+) TIMOLOL MALEATE [Suspect]
     Dosage: UNK
  4. MECLIZINE [Concomitant]

REACTIONS (4)
  - Ocular hyperaemia [Recovered/Resolved]
  - Eye irritation [Recovered/Resolved]
  - Eye pruritus [Not Recovered/Not Resolved]
  - Product quality issue [Unknown]
